FAERS Safety Report 8962492 (Version 1)
Quarter: 2012Q4

REPORT INFORMATION
  Report Type: 
  Country: US (occurrence: US)
  Receive Date: 20121213
  Receipt Date: 20121213
  Transmission Date: 20130627
  Serious: Yes (Hospitalization, Other)
  Sender: FDA-Public Use
  Company Number: US-ROCHE-1167607

PATIENT
  Sex: Female

DRUGS (4)
  1. PEGASYS [Suspect]
     Indication: CHRONIC HEPATITIS C
     Route: 058
     Dates: start: 20120305
  2. TELAPREVIR [Suspect]
     Indication: CHRONIC HEPATITIS C
     Route: 065
     Dates: start: 20120305
  3. RIBAPAK [Suspect]
     Indication: CHRONIC HEPATITIS C
     Dosage: in divided doses
     Route: 048
     Dates: start: 20120305
  4. LEXAPRO [Concomitant]
     Indication: DEPRESSION

REACTIONS (2)
  - Pruritus [Unknown]
  - Panic attack [Unknown]
